FAERS Safety Report 23221793 (Version 2)
Quarter: 2023Q4

REPORT INFORMATION
  Report Type: Spontaneous
  Country: US (occurrence: US)
  Receive Date: 20231123
  Receipt Date: 20231205
  Transmission Date: 20240110
  Serious: No
  Sender: FDA-Public Use
  Company Number: US-SANOFI-01846739

PATIENT
  Age: 44 Year
  Sex: Female

DRUGS (1)
  1. LANTUS SOLOSTAR [Suspect]
     Active Substance: INSULIN GLARGINE
     Indication: Diabetes mellitus
     Dosage: 1 TO 3 UNITS, PER SLIDING SCALE AND DRUG TREATMENT DURATION:ABOUT 2 YEARS
     Dates: start: 2021

REACTIONS (5)
  - Fall [Unknown]
  - Head injury [Unknown]
  - Blood glucose decreased [Unknown]
  - Dizziness [Unknown]
  - Intentional dose omission [Unknown]
